FAERS Safety Report 7496583-8 (Version None)
Quarter: 2011Q2

REPORT INFORMATION
  Report Type: 
  Country: None (occurrence: None)
  Receive Date: 20110523
  Receipt Date: 20110511
  Transmission Date: 20111010
  Serious: Yes (Hospitalization)
  Sender: FDA-Public Use
  Company Number: US-ACTELION-A-US2011-48660

PATIENT

DRUGS (3)
  1. ADCIRCA [Concomitant]
  2. TRACLEER [Suspect]
     Indication: PULMONARY ARTERIAL HYPERTENSION
     Dosage: UNK
     Route: 048
     Dates: start: 20090311
  3. COUMADIN [Concomitant]

REACTIONS (5)
  - URINARY TRACT INFECTION [None]
  - RENAL FAILURE [None]
  - PULMONARY OEDEMA [None]
  - ANAEMIA [None]
  - PYREXIA [None]
